FAERS Safety Report 20843105 (Version 1)
Quarter: 2022Q2

REPORT INFORMATION
  Report Type: Spontaneous
  Country: US (occurrence: None)
  Receive Date: 20220517
  Receipt Date: 20220517
  Transmission Date: 20220721
  Serious: Yes (Hospitalization)
  Sender: FDA-Public Use
  Company Number: None

PATIENT
  Age: 70 Year
  Sex: Male

DRUGS (4)
  1. PREDNISONE [Suspect]
     Active Substance: PREDNISONE
  2. MYCOPHENOLATE MOFETIL [Concomitant]
  3. TACROLIMUS [Concomitant]
  4. TACROLIMUS A [Concomitant]

REACTIONS (2)
  - Abdominal pain [None]
  - Ulcer haemorrhage [None]

NARRATIVE: CASE EVENT DATE: 20220516
